FAERS Safety Report 15003311 (Version 6)
Quarter: 2020Q4

REPORT INFORMATION
  Report Type: Spontaneous
  Country: US (occurrence: US)
  Receive Date: 20180613
  Receipt Date: 20201202
  Transmission Date: 20210113
  Serious: Yes (Other)
  Sender: FDA-Public Use
  Company Number: US-AMGEN-USASP2018078308

PATIENT
  Age: 48 Year
  Sex: Male

DRUGS (3)
  1. METHOTREXATE. [Suspect]
     Active Substance: METHOTREXATE
     Indication: PRODUCT USED FOR UNKNOWN INDICATION
     Dosage: UNK
     Route: 065
     Dates: start: 2009
  2. ENBREL [Suspect]
     Active Substance: ETANERCEPT
     Indication: RHEUMATOID ARTHRITIS
     Dosage: UNK
     Route: 065
  3. XELJANZ XR [Suspect]
     Active Substance: TOFACITINIB CITRATE
     Indication: PRODUCT USED FOR UNKNOWN INDICATION
     Dosage: 11 MILLIGRAM
     Route: 065
     Dates: start: 201808

REACTIONS (6)
  - Pleurisy [Unknown]
  - Pain [Unknown]
  - Lymphocytic infiltration [Unknown]
  - Drug ineffective [Unknown]
  - Pneumonia [Unknown]
  - Neutrophilic dermatosis [Unknown]

NARRATIVE: CASE EVENT DATE: 200804
